FAERS Safety Report 4609536-1 (Version None)
Quarter: 2005Q1

REPORT INFORMATION
  Report Type: 
  Country: None (occurrence: None)
  Receive Date: 20050310
  Receipt Date: 20040824
  Transmission Date: 20050727
  Serious: Yes (Other)
  Sender: FDA-Public Use
  Company Number: 200510215BBE

PATIENT
  Sex: Male

DRUGS (5)
  1. KOATE [Suspect]
     Indication: FACTOR VIII DEFICIENCY
     Dates: start: 19810101
  2. KOATE [Suspect]
     Indication: FACTOR VIII DEFICIENCY
     Dates: start: 19820101
  3. PROFILATE [Suspect]
     Dates: start: 19820101
  4. FACTORATE (FACTOR VIII (ANTIHAEMOPHILIC FACTOR)) [Suspect]
     Dates: start: 19800101
  5. FACTORATE (FACTOR VIII (ANTIHAEMOPHILIC FACTOR)) [Suspect]
     Dates: start: 19870101

REACTIONS (1)
  - HEPATITIS C VIRUS [None]
